FAERS Safety Report 7048185-5 (Version None)
Quarter: 2010Q4

REPORT INFORMATION
  Report Type: 
  Country: None (occurrence: None)
  Receive Date: 20101014
  Receipt Date: 20101014
  Transmission Date: 20110411
  Serious: Yes (Death)
  Sender: FDA-Public Use
  Company Number: None

PATIENT
  Age: 62 Year
  Sex: Female
  Weight: 54.6 kg

DRUGS (1)
  1. WARFARIN SODIUM [Suspect]
     Dosage: 2.5 MG

REACTIONS (4)
  - INTERNATIONAL NORMALISED RATIO INCREASED [None]
  - OVERDOSE [None]
  - PYREXIA [None]
  - SUBDURAL HAEMATOMA [None]
